FAERS Safety Report 13058944 (Version 2)
Quarter: 2017Q1

REPORT INFORMATION
  Report Type: Spontaneous
  Country: IT (occurrence: IT)
  Receive Date: 20161223
  Receipt Date: 20170103
  Transmission Date: 20170428
  Serious: Yes (Other)
  Sender: FDA-Public Use
  Company Number: PHHY2016IT174030

PATIENT
  Age: 52 Year
  Sex: Male

DRUGS (6)
  1. XANAX [Suspect]
     Active Substance: ALPRAZOLAM
     Indication: DRUG ABUSE
     Dosage: 1 DF, ONCE/SINGLE
     Route: 048
     Dates: start: 20161115, end: 20161115
  2. RISPERIDONE. [Suspect]
     Active Substance: RISPERIDONE
     Indication: DRUG ABUSE
     Dosage: 4 DF, ONCE/SINGLE
     Route: 048
     Dates: start: 20161115, end: 20161115
  3. ALPRAZOLAM. [Suspect]
     Active Substance: ALPRAZOLAM
     Indication: DRUG ABUSE
     Dosage: 20 MG, ONCE/SINGLE
     Route: 048
     Dates: start: 20161115, end: 20161115
  4. HUMALOG [Concomitant]
     Active Substance: INSULIN LISPRO
     Indication: PRODUCT USED FOR UNKNOWN INDICATION
     Dosage: 18 U, UNK
     Route: 058
  5. TACHIDOL [Suspect]
     Active Substance: ACETAMINOPHEN\CODEINE PHOSPHATE
     Indication: DRUG ABUSE
     Dosage: 4 DF, ONCE/SINGLE
     Route: 048
     Dates: start: 20161115, end: 20161115
  6. LANTUS [Concomitant]
     Active Substance: INSULIN GLARGINE
     Indication: PRODUCT USED FOR UNKNOWN INDICATION
     Dosage: 22 U, UNK
     Route: 058

REACTIONS (3)
  - Slow speech [Recovering/Resolving]
  - Asthenia [Recovering/Resolving]
  - Drug abuse [Recovering/Resolving]

NARRATIVE: CASE EVENT DATE: 20161116
